FAERS Safety Report 9578492 (Version 1)
Quarter: 2013Q4

REPORT INFORMATION
  Report Type: Spontaneous
  Country: US (occurrence: US)
  Receive Date: 20131001
  Receipt Date: 20131001
  Transmission Date: 20140711
  Serious: No
  Sender: FDA-Public Use
  Company Number: US-AMGEN-USASP2013013595

PATIENT
  Age: 50 Year
  Sex: Female
  Weight: 52.15 kg

DRUGS (6)
  1. ENBREL [Suspect]
     Indication: RHEUMATOID ARTHRITIS
     Dosage: 25 MG, 2 TIMES/WK
     Route: 058
     Dates: start: 1995
  2. MULTIVITAMINS, PLAIN [Concomitant]
     Dosage: UNK
  3. IRON [Concomitant]
     Dosage: 18 MG, UNK
  4. FOLIC ACID [Concomitant]
     Dosage: UNK
  5. CALCITRATE [Concomitant]
     Dosage: 150 MG, UNK
  6. VITAMIN D3 [Concomitant]
     Dosage: 1000 UNIT, UNK

REACTIONS (2)
  - Drug ineffective [Unknown]
  - Pain [Unknown]
